FAERS Safety Report 9262564 (Version 1)
Quarter: 2013Q2

REPORT INFORMATION
  Report Type: Spontaneous
  Country: US (occurrence: US)
  Receive Date: 20130430
  Receipt Date: 20130430
  Transmission Date: 20140414
  Serious: Yes (Other)
  Sender: FDA-Public Use
  Company Number: US-SANOFI-AVENTIS-2013SA040176

PATIENT
  Age: 64 Year
  Sex: Female

DRUGS (2)
  1. LANTUS SOLOSTAR [Suspect]
     Indication: TYPE 2 DIABETES MELLITUS
     Dosage: DOSE:40 UNIT(S)
     Route: 051
     Dates: start: 2011
  2. SOLOSTAR [Suspect]
     Indication: DEVICE THERAPY
     Dates: start: 2011

REACTIONS (5)
  - Tooth infection [Not Recovered/Not Resolved]
  - Hypoacusis [Not Recovered/Not Resolved]
  - Weight decreased [Not Recovered/Not Resolved]
  - Asthenia [Not Recovered/Not Resolved]
  - Diabetic neuropathy [Not Recovered/Not Resolved]
